FAERS Safety Report 5485111-4 (Version None)
Quarter: 2007Q4

REPORT INFORMATION
  Report Type: 
  Country: None (occurrence: None)
  Receive Date: 20071009
  Receipt Date: 20071009
  Transmission Date: 20080405
  Serious: Yes (Other)
  Sender: FDA-Public Use
  Company Number: None

PATIENT
  Sex: Female
  Weight: 63.05 kg

DRUGS (4)
  1. MAGNEVIST [Suspect]
     Indication: POST-TRAUMATIC HEADACHE
     Dosage: 15CC X1 042
     Dates: start: 20070829
  2. MAXZIDE [Concomitant]
  3. ZYRTEC-D [Concomitant]
  4. VITAMIN B-12 [Concomitant]

REACTIONS (1)
  - RENAL FAILURE ACUTE [None]
